FAERS Safety Report 18159237 (Version 3)
Quarter: 2020Q3

REPORT INFORMATION
  Report Type: Report from Study
  Country: US (occurrence: US)
  Receive Date: 20200817
  Receipt Date: 20200915
  Transmission Date: 20201103
  Serious: Yes (Hospitalization)
  Sender: FDA-Public Use
  Company Number: US-JNJFOC-20200813308

PATIENT
  Age: 56 Year
  Sex: Female
  Weight: 96.25 kg

DRUGS (2)
  1. ESKETAMINE [Suspect]
     Active Substance: ESKETAMINE
     Indication: DEPRESSION
     Dates: start: 20170914
  2. ESKETAMINE [Suspect]
     Active Substance: ESKETAMINE

REACTIONS (1)
  - Depression suicidal [Recovered/Resolved]

NARRATIVE: CASE EVENT DATE: 20200806
